FAERS Safety Report 9759581 (Version 1)
Quarter: 2013Q4

REPORT INFORMATION
  Report Type: Spontaneous
  Country: US (occurrence: US)
  Receive Date: 20131216
  Receipt Date: 20131216
  Transmission Date: 20140711
  Serious: No
  Sender: FDA-Public Use
  Company Number: US-GILEAD-2010-0028083

PATIENT
  Sex: Female
  Weight: 96.16 kg

DRUGS (11)
  1. LETAIRIS [Suspect]
     Indication: PULMONARY ARTERIAL HYPERTENSION
     Route: 048
     Dates: start: 20090814
  2. REVATIO [Concomitant]
  3. COUMADIN [Concomitant]
  4. OXYGEN [Concomitant]
  5. SPIRONOLACTONE [Concomitant]
  6. FUROSEMIDE [Concomitant]
  7. CARDIZEM [Concomitant]
  8. SINGULAIR [Concomitant]
  9. PEPCID [Concomitant]
  10. NEXIUM [Concomitant]
  11. TOPIRAMATE [Concomitant]

REACTIONS (1)
  - Skin discolouration [Unknown]
